FAERS Safety Report 11757842 (Version 1)
Quarter: 2015Q4

REPORT INFORMATION
  Report Type: Report from Study
  Country: US (occurrence: None)
  Receive Date: 20151117
  Receipt Date: 20151117
  Transmission Date: 20160304
  Serious: Yes (Hospitalization)
  Sender: FDA-Public Use
  Company Number: 2015US003670

PATIENT
  Age: 56 Year
  Sex: Female
  Weight: 81.6 kg

DRUGS (13)
  1. SYMBIOCORT (BUDESONIDE, FORMOTEROL FUMARATE) [Concomitant]
  2. PREDNISONE (PREDNISONE) [Concomitant]
     Active Substance: PREDNISONE
  3. SINGULAIR (MONTELUKAST SODIUM) [Concomitant]
  4. TESSALON (BENZONATATE) [Concomitant]
  5. OXYGEN. [Concomitant]
     Active Substance: OXYGEN
  6. FLEXERIL [Concomitant]
     Active Substance: CYCLOBENZAPRINE HYDROCHLORIDE
  7. ZITHROMAX [Concomitant]
     Active Substance: AZITHROMYCIN DIHYDRATE
  8. GLASSIA [Suspect]
     Active Substance: .ALPHA.1-PROTEINASE INHIBITOR HUMAN
     Indication: ALPHA-1 ANTI-TRYPSIN DEFICIENCY
     Dosage: OF BODY WEIGHT
     Route: 042
     Dates: start: 20121003
  9. ALBUTEROL (SALBUTAMOL) [Concomitant]
     Active Substance: ALBUTEROL
  10. ZOLOFT [Concomitant]
     Active Substance: SERTRALINE HYDROCHLORIDE
  11. MUCINEX (GUAIFENESIN) [Concomitant]
  12. SPIRIVA [Concomitant]
     Active Substance: TIOTROPIUM BROMIDE MONOHYDRATE
  13. ULTRAM (TRAMADOL HYDROCHLORIDE) [Concomitant]
     Active Substance: TRAMADOL HYDROCHLORIDE

REACTIONS (9)
  - Bronchitis [None]
  - Chronic obstructive pulmonary disease [None]
  - Headache [None]
  - Asthenia [None]
  - Liver function test abnormal [None]
  - Respiratory tract infection [None]
  - Respiratory failure [None]
  - Wrong technique in product usage process [None]
  - Sinusitis [None]
